FAERS Safety Report 5447827-5 (Version None)
Quarter: 2007Q3

REPORT INFORMATION
  Report Type: 
  Country: None (occurrence: None)
  Receive Date: 20070910
  Receipt Date: 20070829
  Transmission Date: 20080115
  Serious: Yes (Other)
  Sender: FDA-Public Use
  Company Number: GB-ELI_LILLY_AND_COMPANY-GB200708006655

PATIENT
  Age: 72 Year
  Sex: Female

DRUGS (3)
  1. YENTREVE [Suspect]
     Indication: STRESS URINARY INCONTINENCE
     Dosage: 20 MG, 2/D
     Route: 048
     Dates: start: 20070703
  2. BENDROFLUMETHIAZIDE [Concomitant]
     Indication: HYPERTENSION
     Dosage: 2.5 MG, UNKNOWN
     Route: 048
  3. MOXONIDINE [Concomitant]
     Indication: HYPERTENSION
     Dosage: 200 MG, 2/D
     Route: 048

REACTIONS (1)
  - BLOOD PRESSURE SYSTOLIC DECREASED [None]
